FAERS Safety Report 9373365 (Version 1)
Quarter: 2013Q2

REPORT INFORMATION
  Report Type: Spontaneous
  Country: US (occurrence: US)
  Receive Date: 20130627
  Receipt Date: 20130627
  Transmission Date: 20140414
  Serious: Yes (Other)
  Sender: FDA-Public Use
  Company Number: CHPA2013US010236

PATIENT
  Sex: Male

DRUGS (2)
  1. MAALOX ANTACID/ANTIGAS MAX QDTABS ASST [Suspect]
     Indication: GASTROOESOPHAGEAL REFLUX DISEASE
     Dosage: A COUPLE DAILY AS NEEDED
     Route: 048
  2. ZANTAC [Concomitant]
     Indication: GASTROOESOPHAGEAL REFLUX DISEASE
     Dosage: 300 MG, QD
     Route: 048

REACTIONS (11)
  - Chronic myeloid leukaemia [Not Recovered/Not Resolved]
  - Renal cancer [Recovered/Resolved]
  - Renal cyst [Not Recovered/Not Resolved]
  - Cholelithiasis [Not Recovered/Not Resolved]
  - Prostatomegaly [Recovered/Resolved]
  - Umbilical hernia [Not Recovered/Not Resolved]
  - Hiatus hernia [Not Recovered/Not Resolved]
  - Urinary tract infection [Recovered/Resolved]
  - Anaemia [Not Recovered/Not Resolved]
  - Abdominal pain upper [Recovered/Resolved]
  - Off label use [Unknown]
